FAERS Safety Report 25661853 (Version 1)
Quarter: 2025Q3

REPORT INFORMATION
  Report Type: Spontaneous
  Country: US (occurrence: US)
  Receive Date: 20250809
  Receipt Date: 20250809
  Transmission Date: 20251020
  Serious: Yes (Other)
  Sender: AMGEN
  Company Number: US-AMGEN-USASP2025155300

PATIENT
  Age: 50 Year
  Sex: Female
  Weight: 76.644 kg

DRUGS (11)
  1. TEPEZZA [Suspect]
     Active Substance: TEPROTUMUMAB-TRBW
     Indication: Toxic goitre
     Route: 040
     Dates: start: 20220201
  2. TEPEZZA [Suspect]
     Active Substance: TEPROTUMUMAB-TRBW
     Dosage: 1600 MILLIGRAM, Q3WK
     Route: 040
     Dates: start: 20220221
  3. TEPEZZA [Suspect]
     Active Substance: TEPROTUMUMAB-TRBW
     Dosage: 1600 MILLIGRAM, Q3WK
     Route: 040
     Dates: start: 20220315
  4. TEPEZZA [Suspect]
     Active Substance: TEPROTUMUMAB-TRBW
     Dosage: 1542 MILLIGRAM, Q3WK
     Route: 040
     Dates: start: 20220405
  5. TEPEZZA [Suspect]
     Active Substance: TEPROTUMUMAB-TRBW
     Dosage: 1542 MILLIGRAM, Q3WK
     Route: 040
     Dates: start: 20220426
  6. TEPEZZA [Suspect]
     Active Substance: TEPROTUMUMAB-TRBW
     Dosage: 1542 MILLIGRAM, Q3WK
     Route: 040
     Dates: start: 20220517
  7. TEPEZZA [Suspect]
     Active Substance: TEPROTUMUMAB-TRBW
     Dosage: 1537 MILLIGRAM, Q3WK
     Route: 040
     Dates: start: 20220606
  8. TEPEZZA [Suspect]
     Active Substance: TEPROTUMUMAB-TRBW
     Dosage: 1509 MILLIGRAM, Q3WK
     Route: 040
     Dates: start: 20220627
  9. TEPEZZA [Suspect]
     Active Substance: TEPROTUMUMAB-TRBW
     Dosage: 1509 MILLIGRAM, Q3WK
     Route: 040
     Dates: start: 20220720
  10. PREDNISONE [Suspect]
     Active Substance: PREDNISONE
     Indication: Product used for unknown indication
     Route: 048
  11. SODIUM CHLORIDE [Concomitant]
     Active Substance: SODIUM CHLORIDE

REACTIONS (5)
  - Exophthalmos [Unknown]
  - Graves^ disease [Unknown]
  - Headache [Recovered/Resolved]
  - Abdominal discomfort [Unknown]
  - Eyelid retraction [Unknown]

NARRATIVE: CASE EVENT DATE: 20220201
